FAERS Safety Report 19043066 (Version 2)
Quarter: 2021Q2

REPORT INFORMATION
  Report Type: Spontaneous
  Country: CA (occurrence: CA)
  Receive Date: 20210322
  Receipt Date: 20210507
  Transmission Date: 20210717
  Serious: Yes (Other)
  Sender: FDA-Public Use
  Company Number: CA-009507513-2103CAN004748

PATIENT
  Age: 62 Year
  Sex: Male

DRUGS (5)
  1. INLYTA [Suspect]
     Active Substance: AXITINIB
     Dosage: 5 MG, TWICE A DAY X 1 MONTH
  2. INLYTA [Suspect]
     Active Substance: AXITINIB
     Indication: RENAL CANCER
     Dosage: FORMULATION: FILM?COATED TABLET; 5MG, TWICE A DAY
     Route: 048
     Dates: start: 20200410, end: 2020
  3. INLYTA [Suspect]
     Active Substance: AXITINIB
     Dosage: 4 MG, TWICE A DAY
  4. KEYTRUDA [Suspect]
     Active Substance: PEMBROLIZUMAB
  5. INLYTA [Suspect]
     Active Substance: AXITINIB
     Dosage: 5 MG, TWICE A DAY
     Dates: start: 2020

REACTIONS (3)
  - Renal haemorrhage [Unknown]
  - Toxicity to various agents [Unknown]
  - Myasthenia gravis [Unknown]
